APPROVED DRUG PRODUCT: LIDOCAINE
Active Ingredient: LIDOCAINE
Strength: 5%
Dosage Form/Route: OINTMENT;TOPICAL
Application: A208660 | Product #001 | TE Code: AT
Applicant: CHARTWELL RX SCIENCES LLC
Approved: Jan 5, 2021 | RLD: No | RS: No | Type: RX